FAERS Safety Report 7534667-6 (Version None)
Quarter: 2011Q2

REPORT INFORMATION
  Report Type: 
  Country: None (occurrence: None)
  Receive Date: 20110609
  Receipt Date: 20110207
  Transmission Date: 20111010
  Serious: Yes (Other)
  Sender: FDA-Public Use
  Company Number: PHHY2010DE74831

PATIENT
  Sex: Female
  Weight: 74 kg

DRUGS (1)
  1. LETROZOLE [Suspect]
     Indication: BREAST CANCER
     Dosage: 2.5 MG DAILY
     Route: 048
     Dates: start: 20090203, end: 20090426

REACTIONS (4)
  - METASTASES TO SOFT TISSUE [None]
  - DEMENTIA [None]
  - MALIGNANT NEOPLASM OF PLEURA [None]
  - METASTASES TO BONE [None]
